FAERS Safety Report 16934848 (Version 1)
Quarter: 2019Q4

REPORT INFORMATION
  Report Type: Spontaneous
  Country: ZA (occurrence: ZA)
  Receive Date: 20191018
  Receipt Date: 20191018
  Transmission Date: 20200122
  Serious: Yes (Hospitalization)
  Sender: FDA-Public Use
  Company Number: NVSC2019ZA002825

PATIENT
  Sex: Male

DRUGS (1)
  1. NOXIDEM [Suspect]
     Active Substance: ZOLPIDEM TARTRATE
     Indication: INSOMNIA
     Dosage: 10 MG
     Route: 048

REACTIONS (2)
  - Dyspnoea [Unknown]
  - Pulmonary thrombosis [Unknown]
